FAERS Safety Report 8014105-X (Version None)
Quarter: 2011Q4

REPORT INFORMATION
  Report Type: 
  Country: None (occurrence: None)
  Receive Date: 20111227
  Receipt Date: 20111227
  Transmission Date: 20120403
  Serious: Yes (Other)
  Sender: FDA-Public Use
  Company Number: None

PATIENT
  Sex: Female

DRUGS (2)
  1. PEGASYS [Suspect]
     Dosage: 150MCG QWEEK SQ
     Route: 058
     Dates: start: 20111029, end: 20111122
  2. RIBAVIRIN [Suspect]
     Dosage: 600MG DAILY PO
     Route: 048

REACTIONS (1)
  - ANAEMIA [None]
